FAERS Safety Report 9532264 (Version 1)
Quarter: 2013Q3

REPORT INFORMATION
  Report Type: Spontaneous
  Country: TH (occurrence: TH)
  Receive Date: 20130918
  Receipt Date: 20130918
  Transmission Date: 20140515
  Serious: Yes (Death, Other)
  Sender: FDA-Public Use
  Company Number: TH-BAXTER-2013BAX036027

PATIENT
  Age: 41 Year
  Sex: Male

DRUGS (2)
  1. ENDOXAN 1 G [Suspect]
     Indication: IMMUNOSUPPRESSION
     Route: 065
  2. PREDNISOLONE [Suspect]
     Indication: IMMUNOSUPPRESSION
     Route: 065

REACTIONS (2)
  - Haemorrhage intracranial [Fatal]
  - Drug ineffective [Not Recovered/Not Resolved]
